FAERS Safety Report 6692274-1 (Version None)
Quarter: 2010Q2

REPORT INFORMATION
  Report Type: 
  Country: None (occurrence: None)
  Receive Date: 20100422
  Receipt Date: 20100413
  Transmission Date: 20101027
  Serious: Yes (Other)
  Sender: FDA-Public Use
  Company Number: US-WYE-H14601510

PATIENT
  Age: 15 Year
  Sex: Female

DRUGS (2)
  1. ROBITUSSIN COUGH LONG ACTING [Suspect]
     Indication: BIPOLAR DISORDER
     Dosage: UNKNOWN
     Route: 048
     Dates: start: 19910101
  2. ROBITUSSIN COUGH LONG ACTING [Suspect]
     Dosage: UNKNOWN
     Route: 048
     Dates: start: 20070101

REACTIONS (15)
  - ANGER [None]
  - CRYING [None]
  - DIARRHOEA [None]
  - DRUG ABUSE [None]
  - DRUG DEPENDENCE [None]
  - DRUG WITHDRAWAL SYNDROME [None]
  - EMOTIONAL DISTRESS [None]
  - FEELING ABNORMAL [None]
  - HEART RATE INCREASED [None]
  - MUSCLE SPASMS [None]
  - NAUSEA [None]
  - OVERDOSE [None]
  - PANIC ATTACK [None]
  - PRODUCT LABEL ISSUE [None]
  - TREMOR [None]
